FAERS Safety Report 10738028 (Version 2)
Quarter: 2017Q3

REPORT INFORMATION
  Report Type: Spontaneous
  Country: JP (occurrence: JP)
  Receive Date: 20150126
  Receipt Date: 20170927
  Transmission Date: 20171127
  Serious: Yes (Disabling, Other)
  Sender: FDA-Public Use
  Company Number: JP-JNJFOC-20150112324

PATIENT
  Age: 40 Year
  Sex: Male

DRUGS (1)
  1. RISPERDAL [Suspect]
     Active Substance: RISPERIDONE
     Indication: PRODUCT USED FOR UNKNOWN INDICATION
     Route: 048
     Dates: start: 201001, end: 201001

REACTIONS (4)
  - Hypoxic-ischaemic encephalopathy [Unknown]
  - Blood pressure decreased [Unknown]
  - Musculoskeletal disorder [Unknown]
  - Respiratory depression [Unknown]
